FAERS Safety Report 23457767 (Version 12)
Quarter: 2025Q1

REPORT INFORMATION
  Report Type: Spontaneous
  Country: US (occurrence: US)
  Receive Date: 20240130
  Receipt Date: 20250307
  Transmission Date: 20250408
  Serious: Yes (Hospitalization, Other)
  Sender: BRISTOL-MYERS SQUIBB COMPANY
  Company Number: US-BRISTOL-MYERS SQUIBB COMPANY-2024-012551

PATIENT
  Age: 68 Year
  Sex: Male

DRUGS (7)
  1. POMALYST [Suspect]
     Active Substance: POMALIDOMIDE
     Indication: Plasma cell myeloma in remission
     Dosage: TAKE 1 CAPSULE BY MOUTH DAILY FOR 1 WEEK ON THEN 1 WEEK OFF
     Route: 048
     Dates: start: 20211119
  2. POMALYST [Suspect]
     Active Substance: POMALIDOMIDE
     Indication: Plasma cell myeloma recurrent
     Dosage: TAKE 1 CAPSULE BY MOUTH EVERY DAY FOR 1 WEEK ON THEN 1 WEEK OFF
     Route: 048
  3. POMALYST [Suspect]
     Active Substance: POMALIDOMIDE
     Indication: Neutropenia
     Route: 048
  4. POMALYST [Suspect]
     Active Substance: POMALIDOMIDE
     Indication: Plasma cell myeloma
     Dosage: TAKE 1 CAPSULE BY MOUTH DAILY FOR 1 WEEK ON, THEN 1 WEEK OFF
     Route: 048
  5. POMALYST [Suspect]
     Active Substance: POMALIDOMIDE
     Dosage: TAKE 1 CAPSULE BY MOUTH DAILY FOR 1 WEEK ON, THEN 1 WEEK OFF.
     Route: 048
  6. POMALYST [Suspect]
     Active Substance: POMALIDOMIDE
     Dosage: TAKE 1 CAPSULE BY MOUTH EVERY DAY FOR 1 WEEK ON THEN ?1 WEEK OF
     Route: 048
  7. POMALYST [Suspect]
     Active Substance: POMALIDOMIDE
     Dosage: TAKE 1 CAPSULE BY MOUTH EVERY DAY FOR 1 WEEK ON THEN ?1 WEEK OF
     Route: 048

REACTIONS (20)
  - Fatigue [Recovering/Resolving]
  - Somnolence [Not Recovered/Not Resolved]
  - Cerebrovascular accident [Recovered/Resolved]
  - Aneurysm [Not Recovered/Not Resolved]
  - Memory impairment [Not Recovered/Not Resolved]
  - Off label use [Unknown]
  - Dizziness [Unknown]
  - Plasma cell myeloma [Recovering/Resolving]
  - Hypersomnia [Unknown]
  - Anaemia [Recovering/Resolving]
  - Red blood cell count decreased [Unknown]
  - Back pain [Not Recovered/Not Resolved]
  - Depression [Unknown]
  - Pruritus [Recovered/Resolved]
  - Anxiety [Recovered/Resolved]
  - Hostility [Recovered/Resolved]
  - Influenza [Recovered/Resolved]
  - Hypersensitivity [Recovered/Resolved]
  - Musculoskeletal stiffness [Recovered/Resolved]
  - Infection [Recovered/Resolved]

NARRATIVE: CASE EVENT DATE: 20231012
